FAERS Safety Report 11421899 (Version 2)
Quarter: 2016Q1

REPORT INFORMATION
  Report Type: Spontaneous
  Country: KR (occurrence: KR)
  Receive Date: 20150827
  Receipt Date: 20160127
  Transmission Date: 20160525
  Serious: Yes (Death)
  Sender: FDA-Public Use
  Company Number: KR-AMGEN-KORCT2015087258

PATIENT
  Age: 52 Year
  Sex: Male
  Weight: 53.9 kg

DRUGS (19)
  1. G-LASTA [Suspect]
     Active Substance: PEGFILGRASTIM
     Dosage: 6 MG, 1X/3WEEKS
     Route: 058
     Dates: start: 20150710, end: 20150710
  2. MESNA. [Concomitant]
     Active Substance: MESNA
     Dosage: 1600 MG, UNK
     Route: 042
     Dates: start: 20150716, end: 20150716
  3. SEPTRIN [Concomitant]
     Active Substance: SULFAMETHOXAZOLE\TRIMETHOPRIM
     Dosage: 400 MG, UNK
     Route: 048
     Dates: start: 20150614, end: 20150806
  4. CRAVIT [Concomitant]
     Active Substance: LEVOFLOXACIN
     Dosage: 500 MG, UNK
     Route: 048
     Dates: start: 20150614, end: 20150715
  5. G-LASTA [Suspect]
     Active Substance: PEGFILGRASTIM
     Indication: FEBRILE NEUTROPENIA
     Dosage: 6 MG, 1X/3WEEKS
     Route: 058
     Dates: start: 20150619, end: 20150619
  6. CARBOPLATIN. [Concomitant]
     Active Substance: CARBOPLATIN
     Dosage: 440 MG, UNK
     Route: 042
     Dates: start: 20150616, end: 20150616
  7. TAZIME [Concomitant]
     Dosage: 2.5 G, UNK
     Route: 042
     Dates: start: 20150720, end: 20150806
  8. FULLGRAM [Concomitant]
     Dosage: 1800 MG, UNK
     Route: 042
     Dates: start: 20150720, end: 20150806
  9. IFOSFAMIDE. [Concomitant]
     Active Substance: IFOSFAMIDE
     Dosage: 8000 MG, UNK
     Route: 042
     Dates: start: 20150707, end: 20150707
  10. MESNA. [Concomitant]
     Active Substance: MESNA
     Dosage: 1600 MG, UNK
     Route: 042
     Dates: start: 20150707, end: 20150707
  11. PLUNAZOLE [Concomitant]
     Dosage: 300 MG, UNK
     Route: 048
     Dates: start: 20150514, end: 20150720
  12. NESP [Concomitant]
     Active Substance: DARBEPOETIN ALFA
     Dosage: 120 MCG
     Route: 058
     Dates: start: 20150618, end: 20150806
  13. FLASINYL [Concomitant]
     Dosage: 1500 MG, UNK
     Route: 048
     Dates: start: 20150726, end: 20150806
  14. CARBOPLATIN. [Concomitant]
     Active Substance: CARBOPLATIN
     Dosage: 420 MG, UNK
     Route: 042
     Dates: start: 20150707, end: 20150707
  15. ETOPOSIDE. [Concomitant]
     Active Substance: ETOPOSIDE
     Dosage: 160 MG, UNK
     Route: 042
     Dates: start: 20150706, end: 20150708
  16. BONALING-A [Concomitant]
     Dosage: 100 MG, UNK
     Route: 048
     Dates: start: 20150715, end: 20150720
  17. IFOSFAMIDE. [Concomitant]
     Active Substance: IFOSFAMIDE
     Dosage: 8000 MG, UNK
     Route: 042
     Dates: start: 20150716, end: 20150716
  18. FUNGIZONE [Concomitant]
     Active Substance: AMPHOTERICIN B
     Dosage: 50 MG, UNK
     Route: 042
     Dates: start: 20150723, end: 20150804
  19. ETOPOSIDE. [Concomitant]
     Active Substance: ETOPOSIDE
     Dosage: 160 MG, UNK
     Route: 042
     Dates: start: 20150615, end: 20150617

REACTIONS (1)
  - Pneumonia [Fatal]

NARRATIVE: CASE EVENT DATE: 20150807
